FAERS Safety Report 6194922-1 (Version None)
Quarter: 2009Q2

REPORT INFORMATION
  Report Type: 
  Country: None (occurrence: None)
  Receive Date: 20090515
  Receipt Date: 20090515
  Transmission Date: 20091009
  Serious: Yes (Hospitalization)
  Sender: FDA-Public Use
  Company Number: None

PATIENT
  Sex: Female
  Weight: 128.7 kg

DRUGS (1)
  1. DASATINIB [Suspect]
     Indication: OSTEOSARCOMA METASTATIC
     Dosage: 70 MG BID PO
     Route: 048
     Dates: start: 20090505, end: 20090513

REACTIONS (5)
  - CONDITION AGGRAVATED [None]
  - HAEMOGLOBIN DECREASED [None]
  - NEOPLASM [None]
  - PLATELET COUNT INCREASED [None]
  - VAGINAL HAEMORRHAGE [None]
